FAERS Safety Report 9753811 (Version 1)
Quarter: 2013Q4

REPORT INFORMATION
  Report Type: Spontaneous
  Country: US (occurrence: US)
  Receive Date: 20131213
  Receipt Date: 20131213
  Transmission Date: 20140711
  Serious: No
  Sender: FDA-Public Use
  Company Number: US-GILEAD-2010-0027110

PATIENT
  Age: 78 Year
  Sex: Male

DRUGS (14)
  1. LETAIRIS [Suspect]
     Indication: PULMONARY ARTERIAL HYPERTENSION
     Route: 048
     Dates: start: 20100120, end: 20100212
  2. ALLOPURINOL [Concomitant]
  3. MULTIVITAMIN [Concomitant]
  4. ALDACTONE [Concomitant]
  5. METOPROLOL [Concomitant]
  6. TRICOR [Concomitant]
  7. LEVOTHYROXINE [Concomitant]
  8. SPIRIVA [Concomitant]
  9. LIPITOR [Concomitant]
  10. FUROSEMIDE [Concomitant]
  11. COUMADIN [Concomitant]
  12. COLCHICINE [Concomitant]
  13. ASPIRIN [Concomitant]
  14. ALBUTEROL [Concomitant]

REACTIONS (1)
  - Dyspnoea [Not Recovered/Not Resolved]
